FAERS Safety Report 14608118 (Version 1)
Quarter: 2018Q1

REPORT INFORMATION
  Report Type: Report from Study
  Country: ZA (occurrence: ZA)
  Receive Date: 20180307
  Receipt Date: 20180307
  Transmission Date: 20180509
  Serious: Yes (Death, Other)
  Sender: FDA-Public Use
  Company Number: PHHY2017ZA007161

PATIENT
  Age: 48 Year
  Sex: Male
  Weight: 94 kg

DRUGS (2)
  1. GLIVEC [Suspect]
     Active Substance: IMATINIB MESYLATE
     Indication: GASTROINTESTINAL STROMAL TUMOUR
     Dosage: 400 MG, QD
     Route: 048
     Dates: start: 20141007
  2. GLIVEC [Suspect]
     Active Substance: IMATINIB MESYLATE
     Dosage: 800 MG, QD
     Route: 048

REACTIONS (3)
  - Malignant neoplasm progression [Unknown]
  - Gastrointestinal stromal tumour [Unknown]
  - Death [Fatal]

NARRATIVE: CASE EVENT DATE: 20170111
